FAERS Safety Report 6161532-1 (Version None)
Quarter: 2009Q2

REPORT INFORMATION
  Report Type: 
  Country: None (occurrence: None)
  Receive Date: 20090421
  Receipt Date: 20090413
  Transmission Date: 20091009
  Serious: Yes (Hospitalization)
  Sender: FDA-Public Use
  Company Number: CA-ELI_LILLY_AND_COMPANY-CA200904003016

PATIENT
  Age: 82 Year
  Sex: Female

DRUGS (3)
  1. FORTEO [Suspect]
     Indication: OSTEOPOROSIS
     Dosage: 20 UG, DAILY (1/D)
     Route: 058
     Dates: start: 20080718
  2. COUMADIN [Concomitant]
  3. WATER PILLS [Concomitant]

REACTIONS (4)
  - BLOOD POTASSIUM DECREASED [None]
  - CARDIAC DISORDER [None]
  - DYSPNOEA [None]
  - SWELLING [None]
